FAERS Safety Report 14756870 (Version 3)
Quarter: 2018Q2

REPORT INFORMATION
  Report Type: Spontaneous
  Country: US (occurrence: US)
  Receive Date: 20180413
  Receipt Date: 20180615
  Transmission Date: 20180711
  Serious: Yes (Hospitalization, Other)
  Sender: FDA-Public Use
  Company Number: US-BAYER-2018-067029

PATIENT
  Age: 66 Year
  Sex: Male

DRUGS (10)
  1. ADEMPAS [Suspect]
     Active Substance: RIOCIGUAT
     Indication: PULMONARY HYPERTENSION
     Dosage: 2.5 MG, TID
     Route: 065
     Dates: start: 20180530
  2. REMODULIN [Suspect]
     Active Substance: TREPROSTINIL
     Indication: PRODUCT USED FOR UNKNOWN INDICATION
     Route: 058
  3. AMBRISENTAN [Suspect]
     Active Substance: AMBRISENTAN
     Indication: PULMONARY HYPERTENSION
     Dosage: 10 MG, QD
     Dates: start: 20180320
  4. REMODULIN [Suspect]
     Active Substance: TREPROSTINIL
     Indication: PRODUCT USED FOR UNKNOWN INDICATION
     Dosage: 0.038 ML, UNK
     Route: 058
  5. ADEMPAS [Suspect]
     Active Substance: RIOCIGUAT
     Indication: PULMONARY HYPERTENSION
     Dosage: 2 MG, TID
     Route: 065
  6. AMBRISENTAN [Suspect]
     Active Substance: AMBRISENTAN
     Indication: PULMONARY HYPERTENSION
     Dosage: UNK
     Dates: start: 20180312
  7. ADEMPAS [Suspect]
     Active Substance: RIOCIGUAT
     Indication: PULMONARY HYPERTENSION
     Dosage: 1.5 MG, TID
     Route: 065
     Dates: start: 20171206
  8. AMBRISENTAN [Suspect]
     Active Substance: AMBRISENTAN
     Indication: PULMONARY HYPERTENSION
     Dosage: 5 MG, QD
     Route: 065
  9. REMODULIN [Suspect]
     Active Substance: TREPROSTINIL
     Indication: PRODUCT USED FOR UNKNOWN INDICATION
     Dosage: 2.5 MG, UNK
     Route: 065
  10. LETAIRIS [Concomitant]
     Active Substance: AMBRISENTAN
     Dosage: 10 MG, QD
     Dates: start: 20180321

REACTIONS (18)
  - Bronchitis viral [Unknown]
  - Catheter site erythema [Not Recovered/Not Resolved]
  - Pneumonia [Unknown]
  - Feeling abnormal [Unknown]
  - Catheter site haemorrhage [Recovered/Resolved]
  - Myalgia [Not Recovered/Not Resolved]
  - Oxygen saturation decreased [None]
  - Nausea [Recovering/Resolving]
  - Infusion site haemorrhage [Recovered/Resolved]
  - Pain [Recovering/Resolving]
  - Catheter site infection [Not Recovered/Not Resolved]
  - Sinus disorder [Unknown]
  - Pain in extremity [None]
  - Catheter site bruise [None]
  - Dizziness [None]
  - Device connection issue [Recovered/Resolved]
  - Influenza [Unknown]
  - Headache [Not Recovered/Not Resolved]

NARRATIVE: CASE EVENT DATE: 20180309
